FAERS Safety Report 18957581 (Version 1)
Quarter: 2021Q1

REPORT INFORMATION
  Report Type: Spontaneous
  Country: US (occurrence: US)
  Receive Date: 20210301
  Receipt Date: 20210301
  Transmission Date: 20210420
  Serious: No
  Sender: FDA-Public Use
  Company Number: None

PATIENT
  Age: 72 Year
  Sex: Male
  Weight: 135 kg

DRUGS (1)
  1. SAXENDA [Suspect]
     Active Substance: LIRAGLUTIDE
     Indication: DIABETES MELLITUS
     Route: 058
     Dates: start: 20200320, end: 20200513

REACTIONS (5)
  - Vomiting [None]
  - Decreased appetite [None]
  - Nausea [None]
  - Hypoglycaemia [None]
  - Impaired gastric emptying [None]

NARRATIVE: CASE EVENT DATE: 20200513
